FAERS Safety Report 6253418-9 (Version None)
Quarter: 2009Q3

REPORT INFORMATION
  Report Type: 
  Country: None (occurrence: None)
  Receive Date: 20090701
  Receipt Date: 20090623
  Transmission Date: 20100115
  Serious: Yes (Hospitalization, Disabling)
  Sender: FDA-Public Use
  Company Number: AU-WYE-G03907809

PATIENT

DRUGS (3)
  1. EFFEXOR XR [Suspect]
     Dosage: 225MG PER DAY
  2. EFFEXOR XR [Suspect]
     Dosage: 150MG
  3. EFFEXOR XR [Suspect]
     Dosage: 75MG PER DAY

REACTIONS (8)
  - DIZZINESS POSTURAL [None]
  - DRUG WITHDRAWAL SYNDROME [None]
  - DYSSTASIA [None]
  - HYPOKINESIA [None]
  - INAPPROPRIATE SCHEDULE OF DRUG ADMINISTRATION [None]
  - MALAISE [None]
  - NAUSEA [None]
  - PARAESTHESIA [None]
